FAERS Safety Report 19785383 (Version 1)
Quarter: 2021Q3

REPORT INFORMATION
  Report Type: Spontaneous
  Country: CA (occurrence: CA)
  Receive Date: 20210903
  Receipt Date: 20210903
  Transmission Date: 20211014
  Serious: Yes (Hospitalization)
  Sender: FDA-Public Use
  Company Number: CA-PFIZER INC-202101103539

PATIENT
  Age: 57 Year
  Sex: Female
  Weight: 43 kg

DRUGS (18)
  1. VALTREX [Suspect]
     Active Substance: VALACYCLOVIR HYDROCHLORIDE
     Dosage: 1000 MG, 2X/DAY
     Route: 048
  2. REACTINE [CETIRIZINE HYDROCHLORIDE] [Suspect]
     Active Substance: CETIRIZINE HYDROCHLORIDE
     Dosage: UNK
  3. CALCIUM [Concomitant]
     Active Substance: CALCIUM
     Dosage: UNK
  4. D?TABS [Concomitant]
     Active Substance: CHOLECALCIFEROL
     Dosage: UNK
  5. LANCORA [Concomitant]
     Active Substance: IVABRADINE
     Dosage: UNK
  6. PANTOLOC [Concomitant]
     Active Substance: PANTOPRAZOLE SODIUM
     Dosage: UNK
  7. IMOVANE [Concomitant]
     Active Substance: ZOPICLONE
     Dosage: UNK
  8. ZOLOFT [Concomitant]
     Active Substance: SERTRALINE HYDROCHLORIDE
     Dosage: UNK
  9. ARANESP [Concomitant]
     Active Substance: DARBEPOETIN ALFA
     Dosage: UNK
  10. LYRICA [Suspect]
     Active Substance: PREGABALIN
     Dosage: UNK
  11. FLORINEF ACETATE [Concomitant]
     Active Substance: FLUDROCORTISONE ACETATE
     Dosage: UNK
  12. GLUCONORM [REPAGLINIDE] [Concomitant]
     Active Substance: REPAGLINIDE
     Dosage: UNK
  13. LAX?A?DAY [Concomitant]
     Active Substance: POLYETHYLENE GLYCOL 3350
     Dosage: UNK
  14. ADVAGRAF [Concomitant]
     Active Substance: TACROLIMUS
     Dosage: UNK
  15. DELTASONE [Concomitant]
     Active Substance: PREDNISONE
     Dosage: UNK
  16. ONEALFA [Concomitant]
     Active Substance: ALFACALCIDOL
     Dosage: UNK
  17. EZETROL [Concomitant]
     Active Substance: EZETIMIBE
     Dosage: UNK
  18. LIPITOR [Concomitant]
     Active Substance: ATORVASTATIN CALCIUM
     Dosage: UNK
     Route: 065

REACTIONS (8)
  - Muscular weakness [Recovered/Resolved]
  - Asterixis [Recovered/Resolved]
  - Hypophagia [Recovered/Resolved]
  - Aphasia [Recovered/Resolved]
  - Drug dose titration not performed [Recovered/Resolved]
  - Psychomotor retardation [Recovered/Resolved]
  - General physical health deterioration [Recovered/Resolved]
  - Drug interaction [Recovered/Resolved]
